FAERS Safety Report 8481478-3 (Version None)
Quarter: 2012Q3

REPORT INFORMATION
  Report Type: 
  Country: None (occurrence: None)
  Receive Date: 20120702
  Receipt Date: 20120625
  Transmission Date: 20120928
  Serious: Yes (Other)
  Sender: FDA-Public Use
  Company Number: PL-PFIZER INC-2012144394

PATIENT
  Sex: Male

DRUGS (1)
  1. CARDURA [Suspect]
     Dosage: 4 MG, ONCE DAILY
     Dates: start: 20120401

REACTIONS (5)
  - LIBIDO DECREASED [None]
  - INDURATION [None]
  - WEIGHT INCREASED [None]
  - OROPHARYNGEAL PAIN [None]
  - OLIGURIA [None]
